FAERS Safety Report 12795758 (Version 3)
Quarter: 2016Q4

REPORT INFORMATION
  Report Type: Spontaneous
  Country: GB (occurrence: GB)
  Receive Date: 20160929
  Receipt Date: 20161107
  Transmission Date: 20170207
  Serious: Yes (Disabling, Other)
  Sender: FDA-Public Use
  Company Number: GB-TEVA-697174ACC

PATIENT
  Age: 16 Year
  Sex: Male
  Weight: 105 kg

DRUGS (9)
  1. CLARITHROMYCIN. [Suspect]
     Active Substance: CLARITHROMYCIN
     Indication: HELICOBACTER INFECTION
  2. AMOXICILLIN. [Concomitant]
     Active Substance: AMOXICILLIN
     Dates: start: 20160812, end: 20160820
  3. MIGRALEVE PINK [Concomitant]
  4. MIGRALEVE YELLOW [Concomitant]
  5. NYSTAN [Concomitant]
     Active Substance: NYSTATIN
  6. ACTAVIS GROUP PTC TOPIRAMATE [Concomitant]
     Active Substance: TOPIRAMATE
     Dates: start: 20160812, end: 20160820
  7. OMEPRAZOL [Concomitant]
     Active Substance: OMEPRAZOLE
  8. MIGRALEVE [Concomitant]
     Active Substance: ACETAMINOPHEN\BUCLIZINE HYDROCHLORIDE\CODEINE
     Dates: start: 20160812, end: 20160820
  9. CLARITHROMYCIN. [Suspect]
     Active Substance: CLARITHROMYCIN
     Indication: HELICOBACTER GASTRITIS
     Route: 048
     Dates: start: 20160812, end: 20160818

REACTIONS (6)
  - Dysarthria [Not Recovered/Not Resolved]
  - Confusional state [Not Recovered/Not Resolved]
  - Psychotic disorder [Recovering/Resolving]
  - Hypersomnia [Recovering/Resolving]
  - Somnolence [Not Recovered/Not Resolved]
  - Disorientation [Recovering/Resolving]

NARRATIVE: CASE EVENT DATE: 20160815
